FAERS Safety Report 6372919-6 (Version None)
Quarter: 2009Q3

REPORT INFORMATION
  Report Type: 
  Country: None (occurrence: None)
  Receive Date: 20090924
  Receipt Date: 20090316
  Transmission Date: 20100115
  Serious: No
  Sender: FDA-Public Use
  Company Number: US-ASTRAZENECA-2008UW25906

PATIENT
  Age: 12328 Day
  Sex: Female
  Weight: 56.7 kg

DRUGS (1)
  1. SEROQUEL [Suspect]
     Indication: DEPRESSION
     Dosage: 25-200MG
     Route: 048
     Dates: start: 20031103

REACTIONS (3)
  - DIABETES MELLITUS [None]
  - INFLUENZA [None]
  - ROAD TRAFFIC ACCIDENT [None]
